FAERS Safety Report 6474702-X (Version None)
Quarter: 2009Q4

REPORT INFORMATION
  Report Type: 
  Country: None (occurrence: None)
  Receive Date: 20091204
  Receipt Date: 20091125
  Transmission Date: 20100525
  Serious: Yes (Other)
  Sender: FDA-Public Use
  Company Number: A0832127A

PATIENT
  Sex: Male

DRUGS (3)
  1. SERETIDE [Suspect]
     Indication: ASTHMA
     Route: 055
     Dates: start: 20090818, end: 20091118
  2. ALBUTEROL [Concomitant]
  3. LORATADINE [Concomitant]

REACTIONS (4)
  - ANXIETY [None]
  - CYANOSIS [None]
  - HYPERHIDROSIS [None]
  - PALLOR [None]
